FAERS Safety Report 14899748 (Version 1)
Quarter: 2018Q2

REPORT INFORMATION
  Report Type: Spontaneous
  Country: US (occurrence: US)
  Receive Date: 20180427
  Receipt Date: 20180427
  Transmission Date: 20180711
  Serious: Yes (Hospitalization)
  Sender: FDA-Public Use
  Company Number: None

PATIENT
  Age: 35 Year
  Sex: Female

DRUGS (12)
  1. STELARA [Suspect]
     Active Substance: USTEKINUMAB
     Indication: COLITIS ULCERATIVE
  2. PHENTERMINE. [Concomitant]
     Active Substance: PHENTERMINE
  3. CIPRO [Concomitant]
     Active Substance: CIPROFLOXACIN HYDROCHLORIDE
  4. HYDROMORPHONE [Concomitant]
     Active Substance: HYDROMORPHONE
  5. GABAPENTIN. [Concomitant]
     Active Substance: GABAPENTIN
  6. D [Concomitant]
  7. KCL [Concomitant]
     Active Substance: POTASSIUM CHLORIDE
  8. FLUCONAZOLE. [Concomitant]
     Active Substance: FLUCONAZOLE
  9. METRONIDAZOLE. [Concomitant]
     Active Substance: METRONIDAZOLE
  10. OXYCODONE [Concomitant]
     Active Substance: OXYCODONE
  11. DOXYCYCLINE. [Concomitant]
     Active Substance: DOXYCYCLINE
  12. PREDNISONE. [Concomitant]
     Active Substance: PREDNISONE

REACTIONS (3)
  - Drug dose omission [None]
  - Insurance issue [None]
  - Constipation [None]

NARRATIVE: CASE EVENT DATE: 2018
